FAERS Safety Report 10573473 (Version 1)
Quarter: 2014Q4

REPORT INFORMATION
  Report Type: Spontaneous
  Country: CN (occurrence: None)
  Receive Date: 20141030
  Receipt Date: 20141030
  Transmission Date: 20150529
  Serious: Yes (Other)
  Sender: FDA-Public Use
  Company Number: PHHY2013CN054119

PATIENT
  Age: 59 Year
  Sex: Male

DRUGS (1)
  1. SEBIVO [Suspect]
     Active Substance: TELBIVUDINE
     Indication: CHRONIC HEPATITIS
     Route: 048
     Dates: end: 20130526

REACTIONS (4)
  - Blood creatine phosphokinase increased [None]
  - Muscular weakness [None]
  - Fatigue [None]
  - Myalgia [None]

NARRATIVE: CASE EVENT DATE: 20130526
